FAERS Safety Report 12758580 (Version 1)
Quarter: 2016Q3

REPORT INFORMATION
  Report Type: Spontaneous
  Country: US (occurrence: US)
  Receive Date: 20160917
  Receipt Date: 20160917
  Transmission Date: 20161109
  Serious: Yes (Other)
  Sender: FDA-Public Use
  Company Number: None

PATIENT
  Age: 58 Year
  Sex: Female
  Weight: 58.5 kg

DRUGS (6)
  1. ZOLOFT [Concomitant]
     Active Substance: SERTRALINE HYDROCHLORIDE
  2. INSULIN [Concomitant]
     Active Substance: INSULIN NOS
  3. VIT [Concomitant]
  4. CALCIM [Concomitant]
  5. HYOSCYAMINE SL [Suspect]
     Active Substance: HYOSCYAMINE SULFATE
     Indication: BLADDER SPASM
     Route: 060
     Dates: start: 20160331, end: 20160915
  6. VITAMIN D [Concomitant]
     Active Substance: CHOLECALCIFEROL

REACTIONS (4)
  - Pruritus [None]
  - Product quality issue [None]
  - Dizziness [None]
  - Skin burning sensation [None]

NARRATIVE: CASE EVENT DATE: 20160905
